FAERS Safety Report 16365367 (Version 1)
Quarter: 2019Q2

REPORT INFORMATION
  Report Type: Spontaneous
  Country: CN (occurrence: CN)
  Receive Date: 20190529
  Receipt Date: 20190529
  Transmission Date: 20190711
  Serious: Yes (Death, Hospitalization, Other)
  Sender: FDA-Public Use
  Company Number: CN-ACCORD-129674

PATIENT
  Age: 78 Year
  Sex: Male

DRUGS (6)
  1. ETOPOSIDE. [Suspect]
     Active Substance: ETOPOSIDE
     Indication: ANGIOCENTRIC LYMPHOMA
     Dosage: 70 MG/M2 I.V. THREE TIMES A DAY FROM DAYS 2 TO 4
     Route: 042
     Dates: start: 20170519
  2. MESNA. [Suspect]
     Active Substance: MESNA
     Indication: ANGIOCENTRIC LYMPHOMA
     Dosage: 300 MG/M2 I.V. THREE TIMES A DAY FROM DAYS 2 TO 4
     Route: 042
     Dates: start: 20170519
  3. METHOTREXATE. [Suspect]
     Active Substance: METHOTREXATE
     Indication: ANGIOCENTRIC LYMPHOMA
     Dosage: 2G/M2 I.V. ON DAY 1
     Route: 042
     Dates: start: 20170519
  4. DEXAMETHASONE. [Suspect]
     Active Substance: DEXAMETHASONE
     Indication: ANGIOCENTRIC LYMPHOMA
     Dosage: 40MG I.V.I.V. DAILY FROM DAYS 1 TO 4
     Route: 042
     Dates: start: 20170519
  5. PEGASPARGASE [Suspect]
     Active Substance: PEGASPARGASE
     Indication: ANGIOCENTRIC LYMPHOMA
     Dosage: 2500 U/M2 SUBCUTANEOUSLY ON DAY 2
     Route: 058
     Dates: start: 20170519
  6. IFOSFAMIDE. [Suspect]
     Active Substance: IFOSFAMIDE
     Indication: ANGIOCENTRIC LYMPHOMA
     Dosage: 1500 MG/M2 I.V.I.V. DAILY FROM DAYS 2 TO 4
     Route: 042
     Dates: start: 20170519

REACTIONS (4)
  - Coagulopathy [Fatal]
  - Pneumonia [Fatal]
  - Infection [Fatal]
  - Respiratory failure [Fatal]

NARRATIVE: CASE EVENT DATE: 2017
